FAERS Safety Report 20018894 (Version 1)
Quarter: 2021Q4

REPORT INFORMATION
  Report Type: Spontaneous
  Country: PL (occurrence: PL)
  Receive Date: 20211101
  Receipt Date: 20211101
  Transmission Date: 20220303
  Serious: Yes (Death, Life-Threatening, Other)
  Sender: FDA-Public Use
  Company Number: PL-AMGEN-POLSP2021167408

PATIENT

DRUGS (4)
  1. PEGFILGRASTIM [Suspect]
     Active Substance: PEGFILGRASTIM
     Indication: Prophylaxis
     Dosage: 6 MILLIGRAM
     Route: 058
  2. DOXORUBICIN [Concomitant]
     Active Substance: DOXORUBICIN
     Indication: Soft tissue sarcoma
     Dosage: 25 MILLIGRAM/SQ. METER, QD (DAYS 1-3)
     Route: 065
  3. IFOSFAMIDE [Concomitant]
     Active Substance: IFOSFAMIDE
     Indication: Soft tissue sarcoma
     Dosage: 2.5 GRAM PER SQUARE METRE, QD (1-4 DAYS)
     Route: 065
  4. MESNA [Concomitant]
     Active Substance: MESNA
     Indication: Soft tissue sarcoma
     Dosage: UNK

REACTIONS (4)
  - Pancytopenia [Fatal]
  - Septic shock [Fatal]
  - Myelosuppression [Fatal]
  - Neutropenia [Unknown]
